FAERS Safety Report 8339077-X (Version None)
Quarter: 2012Q2

REPORT INFORMATION
  Report Type: 
  Country: None (occurrence: None)
  Receive Date: 20120502
  Receipt Date: 20120416
  Transmission Date: 20120825
  Serious: Yes (Death, Hospitalization, Disabling, Other)
  Sender: FDA-Public Use
  Company Number: 2012SGN00027

PATIENT
  Age: 75 Year
  Sex: Male
  Weight: 82 kg

DRUGS (5)
  1. PREDNISOLONE ACETATE [Concomitant]
  2. LEVOFLOXACIN [Concomitant]
  3. TRIAMCINOLONE (TRIAMCINOLONE ACETONIDE) [Concomitant]
  4. GABAPENTIN [Concomitant]
  5. BRENTUXIMAB VEDOTIN (BRENTUXIMAB VEDOTIN) INJECTION [Suspect]
     Indication: MYCOSIS FUNGOIDES
     Dosage: 1.8 MG/KG, Q21D, INTRAVENOUS
     Route: 042
     Dates: start: 20110906, end: 20111220

REACTIONS (37)
  - RESPIRATORY FAILURE [None]
  - AXONAL NEUROPATHY [None]
  - PERIPHERAL SENSORIMOTOR NEUROPATHY [None]
  - GAIT DISTURBANCE [None]
  - BALANCE DISORDER [None]
  - DIARRHOEA [None]
  - DIZZINESS [None]
  - NERVE DEGENERATION [None]
  - TOXICITY TO VARIOUS AGENTS [None]
  - SEPSIS [None]
  - SENSORY LOSS [None]
  - CONSTIPATION [None]
  - MYCOSIS FUNGOIDES [None]
  - FATIGUE [None]
  - PYREXIA [None]
  - POLYNEUROPATHY IN MALIGNANT DISEASE [None]
  - ACTIVITIES OF DAILY LIVING IMPAIRED [None]
  - DYSSTASIA [None]
  - AUTOIMMUNE DISORDER [None]
  - LEUKOCYTOSIS [None]
  - GENERAL PHYSICAL HEALTH DETERIORATION [None]
  - DEMYELINATION [None]
  - ISCHAEMIA [None]
  - IMPAIRED SELF-CARE [None]
  - LOSS OF PROPRIOCEPTION [None]
  - NERVE INJURY [None]
  - RHINORRHOEA [None]
  - SINUS TACHYCARDIA [None]
  - NEOPLASM PROGRESSION [None]
  - BREATH SOUNDS ABNORMAL [None]
  - NEUTROPHIL COUNT INCREASED [None]
  - LYMPHOCYTE COUNT INCREASED [None]
  - PULMONARY HAEMORRHAGE [None]
  - METABOLIC DISORDER [None]
  - CSF PROTEIN INCREASED [None]
  - SUPRAVENTRICULAR TACHYCARDIA [None]
  - LOWER RESPIRATORY TRACT INFECTION [None]
